FAERS Safety Report 20244701 (Version 8)
Quarter: 2022Q4

REPORT INFORMATION
  Report Type: Other
  Country: JP (occurrence: JP)
  Receive Date: 20211229
  Receipt Date: 20221117
  Transmission Date: 20230112
  Serious: Yes (Other)
  Sender: FDA-Public Use
  Company Number: JP-CHUGAI-2021033249

PATIENT
  Age: 74 Year
  Sex: Female
  Weight: 46.4 kg

DRUGS (8)
  1. ATEZOLIZUMAB [Suspect]
     Active Substance: ATEZOLIZUMAB
     Indication: Lung adenocarcinoma
     Route: 041
     Dates: start: 20210820, end: 20210820
  2. ATEZOLIZUMAB [Suspect]
     Active Substance: ATEZOLIZUMAB
     Route: 041
     Dates: start: 20211007, end: 20220701
  3. CARBOPLATIN [Suspect]
     Active Substance: CARBOPLATIN
     Indication: Lung adenocarcinoma
     Dosage: 330 MILLIGRAM, QD
     Route: 041
     Dates: start: 20210820, end: 20210820
  4. CARBOPLATIN [Suspect]
     Active Substance: CARBOPLATIN
     Dosage: 260 MILLIGRAM, QD?MOST RECENT DOSE: 07/OCT/2021
     Route: 041
     Dates: start: 20211007
  5. PACLITAXEL [Suspect]
     Active Substance: PACLITAXEL
     Indication: Lung adenocarcinoma
     Dosage: 250 MILLIGRAM, QD
     Route: 041
     Dates: start: 20210820, end: 20210820
  6. PACLITAXEL [Suspect]
     Active Substance: PACLITAXEL
     Dosage: 200 MILLIGRAM, QD?MOST RECENT DOSE: 07/OCT/2021
     Route: 041
     Dates: start: 20211007
  7. AVASTIN [Concomitant]
     Active Substance: BEVACIZUMAB
     Indication: Lung adenocarcinoma
     Dosage: 690 MILLIGRAM
     Route: 041
     Dates: start: 20210820, end: 20210820
  8. AVASTIN [Concomitant]
     Active Substance: BEVACIZUMAB
     Dosage: 690 MILLIGRAM
     Route: 041
     Dates: start: 20211007, end: 20220701

REACTIONS (7)
  - Pyrexia [Recovered/Resolved]
  - Decreased appetite [Recovered/Resolved]
  - Neutrophil count decreased [Recovering/Resolving]
  - Herpes zoster [Recovering/Resolving]
  - Malaise [Recovered/Resolved]
  - Arthralgia [Recovered/Resolved]
  - Pyrexia [Recovered/Resolved]

NARRATIVE: CASE EVENT DATE: 20210822
